FAERS Safety Report 23403912 (Version 1)
Quarter: 2024Q1

REPORT INFORMATION
  Report Type: Spontaneous
  Country: US (occurrence: US)
  Receive Date: 20240116
  Receipt Date: 20240116
  Transmission Date: 20240410
  Serious: Yes (Other)
  Sender: FDA-Public Use
  Company Number: US-BoehringerIngelheim-2024-BI-001340

PATIENT
  Age: 16 Year
  Sex: Female

DRUGS (2)
  1. AFATINIB [Suspect]
     Active Substance: AFATINIB
     Indication: Cholangiocarcinoma
     Dosage: DAILY DOSE: 40 MILLIGRAM(S)
  2. cisplatin-gemcitabine [Concomitant]
     Indication: Cholangiocarcinoma
     Dosage: CISPLATIN 25 MG/ M2 FOLLOWED BY GEMCITABINE 1,000 MG/M2 ON DAYS 1 AND 8 EVERY 3 WEEKS.

REACTIONS (3)
  - Malignant neoplasm progression [Unknown]
  - Intentional product use issue [Unknown]
  - Dermatitis acneiform [Unknown]
